FAERS Safety Report 9234277 (Version 4)
Quarter: 2013Q2

REPORT INFORMATION
  Report Type: Spontaneous
  Country: JP (occurrence: JP)
  Receive Date: 20130416
  Receipt Date: 20130610
  Transmission Date: 20140414
  Serious: Yes (Hospitalization, Other)
  Sender: FDA-Public Use
  Company Number: JP-ROCHE-1062789

PATIENT
  Age: 43 Year
  Sex: Male
  Weight: 70 kg

DRUGS (20)
  1. MIRCERA [Suspect]
     Indication: NEPHROGENIC ANAEMIA
     Dosage: DOSAGE IS UNCERTAIN.
     Route: 058
     Dates: start: 20120213, end: 20120213
  2. MIRCERA [Suspect]
     Indication: NEPHROGENIC ANAEMIA
     Route: 058
     Dates: start: 20120419, end: 20120510
  3. EPOGIN S [Suspect]
     Indication: NEPHROGENIC ANAEMIA
     Route: 058
     Dates: start: 20100729, end: 20100812
  4. EPOGIN S [Suspect]
     Indication: NEPHROGENIC ANAEMIA
     Route: 058
     Dates: start: 20100812, end: 20101021
  5. EPOGIN S [Suspect]
     Indication: NEPHROGENIC ANAEMIA
     Route: 058
     Dates: start: 20101021, end: 20101122
  6. EPOGIN S [Suspect]
     Indication: NEPHROGENIC ANAEMIA
     Route: 058
     Dates: start: 20101122, end: 20110314
  7. EPOGIN S [Suspect]
     Indication: NEPHROGENIC ANAEMIA
     Route: 058
     Dates: start: 20110922, end: 20120123
  8. NESP [Suspect]
     Indication: NEPHROGENIC ANAEMIA
     Route: 058
     Dates: start: 20110411, end: 20110411
  9. NESP [Suspect]
     Indication: NEPHROGENIC ANAEMIA
     Route: 058
     Dates: start: 20110509, end: 20110613
  10. NESP [Suspect]
     Indication: NEPHROGENIC ANAEMIA
     Route: 058
     Dates: start: 20110711, end: 20110912
  11. NESP [Suspect]
     Route: 058
     Dates: start: 201305
  12. OLMETEC [Concomitant]
     Route: 048
  13. RASILEZ [Concomitant]
     Route: 048
  14. LASIX [Concomitant]
     Route: 048
  15. ALDACTONE A [Concomitant]
     Route: 048
  16. TERAZOSIN HYDROCHLORIDE [Concomitant]
     Dosage: DRUG REPORTED AS : VASOMET
     Route: 048
  17. AMLODIN [Concomitant]
     Dosage: DRUG REPORTED AS : AMLODIN OD
     Route: 048
  18. BIOFERMIN (LACTOBACTERIA/GLYCOBACTERIA) [Concomitant]
     Route: 048
  19. CALTAN [Concomitant]
     Route: 048
  20. PHOSBLOCK [Concomitant]
     Route: 048

REACTIONS (2)
  - Aplasia pure red cell [Not Recovered/Not Resolved]
  - Device related infection [Recovering/Resolving]
